FAERS Safety Report 4509442-7 (Version None)
Quarter: 2004Q4

REPORT INFORMATION
  Report Type: 
  Country: None (occurrence: None)
  Receive Date: 20041025
  Receipt Date: 20040211
  Transmission Date: 20050328
  Serious: Yes (Other)
  Sender: FDA-Public Use
  Company Number: US-JNJFOC-20040202674

PATIENT
  Age: 31 Year
  Sex: Male
  Weight: 87.0906 kg

DRUGS (4)
  1. REMICADE [Suspect]
     Indication: RHEUMATOID ARTHRITIS
     Dosage: 270 MG, INTRAVENOUS
     Route: 042
     Dates: start: 20040211, end: 20040211
  2. REMICADE [Suspect]
     Indication: RHEUMATOID ARTHRITIS
     Dosage: 270 MG, INTRAVENOUS
     Route: 042
     Dates: start: 20030501
  3. BENADRYL [Concomitant]
  4. CLARINEX [Concomitant]

REACTIONS (3)
  - BLOOD PRESSURE INCREASED [None]
  - CHILLS [None]
  - INFUSION RELATED REACTION [None]
